FAERS Safety Report 5819786-4 (Version None)
Quarter: 2008Q3

REPORT INFORMATION
  Report Type: 
  Country: None (occurrence: None)
  Receive Date: 20080723
  Receipt Date: 20080715
  Transmission Date: 20090109
  Serious: Yes (Hospitalization)
  Sender: FDA-Public Use
  Company Number: AU-ABBOTT-08P-008-0462671-00

PATIENT
  Sex: Female

DRUGS (4)
  1. E.E.S. [Suspect]
     Indication: CONGENITAL SKIN DISORDER
     Dates: start: 20071224, end: 20080117
  2. LIPEX [Suspect]
     Indication: METABOLIC DISORDER
     Route: 048
     Dates: end: 20080117
  3. BACLOFEN [Concomitant]
     Indication: DYSKINESIA
  4. ACETAMINOPHEN W/ CODEINE [Concomitant]
     Indication: DYSKINESIA
     Route: 048

REACTIONS (3)
  - ASTHENIA [None]
  - MYALGIA [None]
  - RHABDOMYOLYSIS [None]
